FAERS Safety Report 9937092 (Version 5)
Quarter: 2014Q2

REPORT INFORMATION
  Report Type: Report from Study
  Country: CO (occurrence: CO)
  Receive Date: 20140301
  Receipt Date: 20140404
  Transmission Date: 20141212
  Serious: Yes (Other)
  Sender: FDA-Public Use
  Company Number: CO-ROCHE-1352376

PATIENT
  Sex: Female
  Weight: 76 kg

DRUGS (1)
  1. RANIBIZUMAB [Suspect]
     Indication: PRODUCT USED FOR UNKNOWN INDICATION
     Route: 050
     Dates: start: 201311

REACTIONS (3)
  - Visual acuity reduced [Unknown]
  - Cataract [Unknown]
  - Pterygium [Unknown]
